FAERS Safety Report 6145089-7 (Version None)
Quarter: 2009Q2

REPORT INFORMATION
  Report Type: 
  Country: None (occurrence: None)
  Receive Date: 20090406
  Receipt Date: 20081224
  Transmission Date: 20091009
  Serious: No
  Sender: FDA-Public Use
  Company Number: A0761775A

PATIENT
  Sex: Male

DRUGS (2)
  1. ADVAIR HFA [Suspect]
     Route: 055
  2. AEROCHAMBER [Concomitant]

REACTIONS (1)
  - VOCAL CORD DISORDER [None]
